FAERS Safety Report 7334103-9 (Version None)
Quarter: 2011Q1

REPORT INFORMATION
  Report Type: 
  Country: None (occurrence: None)
  Receive Date: 20110302
  Receipt Date: 20110302
  Transmission Date: 20110831
  Serious: Yes (Other)
  Sender: FDA-Public Use
  Company Number: None

PATIENT
  Sex: Female
  Weight: 61.2356 kg

DRUGS (2)
  1. HYDROCODONE BITARTRATE + ACETAMINOPHEN [Suspect]
     Indication: PAIN IN EXTREMITY
     Dosage: 1 TWICE A DAY BID PO
     Route: 048
     Dates: start: 20101211, end: 20101212
  2. HYDROCODONE BITARTRATE + ACETAMINOPHEN [Suspect]
     Indication: BACK PAIN
     Dosage: 1 TWICE A DAY BID PO
     Route: 048
     Dates: start: 20101211, end: 20101212

REACTIONS (4)
  - NAUSEA [None]
  - PRURITUS [None]
  - HEADACHE [None]
  - OEDEMA PERIPHERAL [None]
